FAERS Safety Report 17207736 (Version 1)
Quarter: 2019Q4

REPORT INFORMATION
  Report Type: Spontaneous
  Country: AT (occurrence: AT)
  Receive Date: 20191227
  Receipt Date: 20191227
  Transmission Date: 20200122
  Serious: Yes (Hospitalization, Other)
  Sender: FDA-Public Use
  Company Number: AT-JNJFOC-20191241788

PATIENT
  Age: 54 Year
  Sex: Male
  Weight: 80 kg

DRUGS (2)
  1. REMICADE [Suspect]
     Active Substance: INFLIXIMAB
     Indication: AXIAL SPONDYLOARTHRITIS
     Route: 042
     Dates: start: 201601, end: 201701
  2. INFLECTRA [Suspect]
     Active Substance: INFLIXIMAB-DYYB
     Indication: AXIAL SPONDYLOARTHRITIS
     Route: 042
     Dates: start: 201703, end: 201703

REACTIONS (1)
  - Malignant melanoma [Unknown]

NARRATIVE: CASE EVENT DATE: 20170524
